FAERS Safety Report 18254166 (Version 2)
Quarter: 2020Q3

REPORT INFORMATION
  Report Type: Report from Study
  Country: None (occurrence: US)
  Receive Date: 20200910
  Receipt Date: 20200917
  Transmission Date: 20201103
  Serious: No
  Sender: FDA-Public Use
  Company Number: US-BIOVITRUM-2020US4799

PATIENT
  Age: 11 Year
  Sex: Female

DRUGS (6)
  1. KINERET [Suspect]
     Active Substance: ANAKINRA
     Dosage: Q 12 HOURS
     Route: 058
     Dates: start: 20200902
  2. KINERET [Suspect]
     Active Substance: ANAKINRA
     Indication: ARTERITIS
     Route: 058
  3. ASPIRIN. [Concomitant]
     Active Substance: ASPIRIN
  4. PREDNISONE. [Concomitant]
     Active Substance: PREDNISONE
  5. LOVENOX [Concomitant]
     Active Substance: ENOXAPARIN SODIUM
  6. LANSOPRAZOLE. [Concomitant]
     Active Substance: LANSOPRAZOLE

REACTIONS (6)
  - Off label use [Unknown]
  - Pruritus [Unknown]
  - Peripheral swelling [Unknown]
  - Acne [Unknown]
  - Swelling face [Unknown]
  - Rash [Unknown]

NARRATIVE: CASE EVENT DATE: 20200902
